FAERS Safety Report 9891218 (Version 1)
Quarter: 2014Q1

REPORT INFORMATION
  Report Type: Spontaneous
  Country: FR (occurrence: FR)
  Receive Date: 20140212
  Receipt Date: 20140212
  Transmission Date: 20141002
  Serious: Yes (Hospitalization)
  Sender: FDA-Public Use
  Company Number: FR-JNJFOC-20140205612

PATIENT
  Age: 83 Year
  Sex: Female

DRUGS (7)
  1. XARELTO [Suspect]
     Indication: CEREBROVASCULAR ACCIDENT PROPHYLAXIS
     Route: 048
     Dates: start: 20130429, end: 20130923
  2. XARELTO [Suspect]
     Indication: ATRIAL FIBRILLATION
     Route: 048
     Dates: start: 20130429, end: 20130923
  3. TEMESTA [Concomitant]
     Route: 048
  4. CORVASAL [Concomitant]
     Route: 048
  5. CORDARONE [Concomitant]
     Route: 048
  6. PRACTAZIN [Concomitant]
     Route: 048
  7. CARDENSIEL [Concomitant]
     Route: 048

REACTIONS (1)
  - Blood creatine increased [Recovering/Resolving]
